FAERS Safety Report 13088037 (Version 1)
Quarter: 2017Q1

REPORT INFORMATION
  Report Type: Spontaneous
  Country: JP (occurrence: JP)
  Receive Date: 20170105
  Receipt Date: 20170105
  Transmission Date: 20170428
  Serious: Yes (Other)
  Sender: FDA-Public Use
  Company Number: JP-009507513-1701JPN002241

PATIENT
  Age: 32 Year
  Sex: Male

DRUGS (4)
  1. TEICOPLANIN [Concomitant]
     Active Substance: TEICOPLANIN
     Indication: ENTEROCOCCAL INFECTION
     Dosage: UNK
  2. DAPTOMYCIN. [Suspect]
     Active Substance: DAPTOMYCIN
     Indication: ENDOCARDITIS ENTEROCOCCAL
     Dosage: 10 MG/KG, QD
  3. DAPTOMYCIN. [Suspect]
     Active Substance: DAPTOMYCIN
     Dosage: 6 MG/KG, QD
  4. GENTAMICIN. [Concomitant]
     Active Substance: GENTAMICIN
     Indication: ENTEROCOCCAL INFECTION
     Dosage: 1.3 MG/KG, Q12H

REACTIONS (1)
  - Pathogen resistance [Recovered/Resolved]
